FAERS Safety Report 5565346-2 (Version None)
Quarter: 2007Q4

REPORT INFORMATION
  Report Type: 
  Country: None (occurrence: None)
  Receive Date: 20071218
  Receipt Date: 20031201
  Transmission Date: 20080405
  Serious: Yes (Death, Other)
  Sender: FDA-Public Use
  Company Number: US-ROCHE-353298

PATIENT
  Sex: Male

DRUGS (5)
  1. VALIUM [Suspect]
     Indication: DRUG USE FOR UNKNOWN INDICATION
     Route: 048
     Dates: start: 19780101
  2. PERSANTINE [Concomitant]
     Route: 048
  3. PERITRATE [Concomitant]
     Route: 048
  4. SURFAK [Concomitant]
     Route: 048
  5. ZINC [Concomitant]
     Dosage: INDICATION: SUPPLEMENT.
     Route: 048

REACTIONS (6)
  - CEREBRAL DISORDER [None]
  - CONFUSIONAL STATE [None]
  - DEATH [None]
  - HALLUCINATION [None]
  - HOMICIDE [None]
  - MENTAL DISORDER DUE TO A GENERAL MEDICAL CONDITION [None]
